FAERS Safety Report 10348707 (Version 4)
Quarter: 2014Q3

REPORT INFORMATION
  Report Type: Report from Study
  Country: MX (occurrence: MX)
  Receive Date: 20140729
  Receipt Date: 20140820
  Transmission Date: 20150326
  Serious: Yes (Other)
  Sender: FDA-Public Use
  Company Number: PHHY2013MX093965

PATIENT
  Age: 65 Year
  Sex: Male

DRUGS (7)
  1. NIMOTOP [Concomitant]
     Active Substance: NIMODIPINE
     Indication: DEMENTIA ALZHEIMER^S TYPE
     Dosage: UNK UKN, UNK
     Dates: start: 201307
  2. OLANZAPINE. [Concomitant]
     Active Substance: OLANZAPINE
     Dosage: 2 DF, DAILY
     Route: 048
     Dates: start: 2013
  3. CLONAZEPAN [Concomitant]
     Active Substance: CLONAZEPAM
     Dosage: UNK UKN, DAILY
  4. NIMOTOP [Concomitant]
     Active Substance: NIMODIPINE
     Dosage: 2 DF, DAILY
     Route: 048
     Dates: start: 201401
  5. SERTRALINE [Concomitant]
     Active Substance: SERTRALINE HYDROCHLORIDE
     Dosage: 1 DF, DAILY
     Route: 048
     Dates: start: 2013
  6. EXELON PATCH [Suspect]
     Active Substance: RIVASTIGMINE
     Indication: DEMENTIA ALZHEIMER^S TYPE
     Dosage: 4.6 MG (PATCH 5CM2), DAILY
     Route: 062
     Dates: start: 201302, end: 201303
  7. EXELON PATCH [Suspect]
     Active Substance: RIVASTIGMINE
     Dosage: 9.5 MG (PATCH 10CM2), DAILY
     Route: 062
     Dates: start: 201303, end: 201306

REACTIONS (12)
  - Cerebrovascular accident [Recovering/Resolving]
  - Musculoskeletal disorder [Unknown]
  - Abasia [Not Recovered/Not Resolved]
  - Confusional state [Unknown]
  - Hallucination [Not Recovered/Not Resolved]
  - Arteriosclerosis [Unknown]
  - Speech disorder [Recovering/Resolving]
  - Dementia Alzheimer^s type [Not Recovered/Not Resolved]
  - Disorientation [Unknown]
  - Irritability [Not Recovered/Not Resolved]
  - Memory impairment [Unknown]
  - Incoherent [Unknown]

NARRATIVE: CASE EVENT DATE: 201305
